FAERS Safety Report 6236754-1 (Version None)
Quarter: 2009Q2

REPORT INFORMATION
  Report Type: 
  Country: None (occurrence: None)
  Receive Date: 20090619
  Receipt Date: 20090611
  Transmission Date: 20091009
  Serious: Yes (Other)
  Sender: FDA-Public Use
  Company Number: PHHY2009MX23220

PATIENT
  Sex: Female

DRUGS (1)
  1. ACLASTA [Suspect]
     Indication: OSTEOPOROSIS
     Dosage: 5 MG/ 100 ML
     Route: 042
     Dates: start: 20090522

REACTIONS (6)
  - ANOREXIA [None]
  - CONSTIPATION [None]
  - DISCOMFORT [None]
  - GASTROINTESTINAL INFECTION [None]
  - PAIN IN EXTREMITY [None]
  - VOMITING [None]
